FAERS Safety Report 6282110-X (Version None)
Quarter: 2009Q3

REPORT INFORMATION
  Report Type: 
  Country: None (occurrence: None)
  Receive Date: 20090724
  Receipt Date: 20081210
  Transmission Date: 20100115
  Serious: No
  Sender: FDA-Public Use
  Company Number: US-KINGPHARMUSA00001-K200801393

PATIENT
  Age: 54 Year
  Sex: Female

DRUGS (2)
  1. SEPTRA [Suspect]
     Indication: ANTIMICROBIAL SUSCEPTIBILITY TEST RESISTANT
     Dosage: UNK
     Route: 048
     Dates: start: 20080205
  2. CELEBREX [Concomitant]
     Indication: ARTHRITIS
     Dosage: UNK

REACTIONS (10)
  - ABDOMINAL PAIN UPPER [None]
  - ARTHRALGIA [None]
  - ARTHRITIS [None]
  - FEELING ABNORMAL [None]
  - MALAISE [None]
  - MUSCULAR WEAKNESS [None]
  - MYALGIA [None]
  - NAUSEA [None]
  - PAIN [None]
  - SWELLING [None]
